FAERS Safety Report 6014345-5 (Version None)
Quarter: 2008Q4

REPORT INFORMATION
  Report Type: 
  Country: None (occurrence: None)
  Receive Date: 20081219
  Receipt Date: 20080425
  Transmission Date: 20090506
  Serious: No
  Sender: FDA-Public Use
  Company Number: A0724869A

PATIENT
  Age: 83 Year
  Sex: Male

DRUGS (5)
  1. AVODART [Suspect]
     Indication: DRUG USE FOR UNKNOWN INDICATION
     Dosage: .5MG PER DAY
     Route: 048
     Dates: start: 20080401, end: 20080401
  2. WARFARIN SODIUM [Concomitant]
  3. DOXAZOSIN MESYLATE [Concomitant]
  4. LISINOPRIL [Concomitant]
  5. AMLODIPINE [Concomitant]

REACTIONS (2)
  - BURNING SENSATION [None]
  - INFLAMMATION [None]
